FAERS Safety Report 6823795-6 (Version None)
Quarter: 2010Q3

REPORT INFORMATION
  Report Type: 
  Country: None (occurrence: None)
  Receive Date: 20100708
  Receipt Date: 20060901
  Transmission Date: 20110219
  Serious: No
  Sender: FDA-Public Use
  Company Number: US-PFIZER INC-2006109386

PATIENT
  Sex: Female
  Weight: 93.89 kg

DRUGS (2)
  1. VARENICLINE [Suspect]
     Indication: EX-TOBACCO USER
     Route: 048
     Dates: start: 20060823
  2. INVESTIGATIONAL DRUG [Concomitant]
     Dates: start: 20050101

REACTIONS (4)
  - DIARRHOEA [None]
  - EATING DISORDER [None]
  - INSOMNIA [None]
  - VOMITING [None]
